FAERS Safety Report 8840567 (Version 1)
Quarter: 2012Q4

REPORT INFORMATION
  Report Type: 
  Country: GB (occurrence: GB)
  Receive Date: 20121015
  Receipt Date: 20121015
  Transmission Date: 20130627
  Serious: Yes (Hospitalization)
  Sender: FDA-Public Use
  Company Number: GB-PFIZER INC-2012253191

PATIENT
  Age: 71 Year
  Sex: Female
  Weight: 46.71 kg

DRUGS (9)
  1. SERTRALINE HCL [Suspect]
     Indication: DEPRESSION
     Route: 048
     Dates: start: 20120830, end: 20120926
  2. SERTRALINE HCL [Suspect]
     Route: 048
     Dates: start: 20120926, end: 20120928
  3. CANDESARTAN CILEXETIL [Concomitant]
     Dosage: Withheld along with the sertraline
  4. LACRI-LUBE [Concomitant]
  5. BECLOMETASONE [Concomitant]
     Route: 045
  6. HYALURONATE SODIUM [Concomitant]
  7. AMITRIPTYLINE [Concomitant]
     Dosage: At night. Withheld along with the sertraline
  8. DOXYCYCLINE HYCLATE [Concomitant]
  9. DIAZEPAM [Concomitant]

REACTIONS (6)
  - Confusional state [Unknown]
  - Hallucinations, mixed [Unknown]
  - Agitation [Unknown]
  - Hyponatraemia [Unknown]
  - Miosis [Unknown]
  - Autonomic nervous system imbalance [Unknown]
